FAERS Safety Report 19403231 (Version 1)
Quarter: 2021Q2

REPORT INFORMATION
  Report Type: Spontaneous
  Country: US (occurrence: US)
  Receive Date: 20210610
  Receipt Date: 20210610
  Transmission Date: 20210717
  Serious: Yes (Death)
  Sender: FDA-Public Use
  Company Number: None

PATIENT
  Age: 72 Year
  Sex: Male

DRUGS (13)
  1. TACROLIMUS 0.5MG CAP [Suspect]
     Active Substance: TACROLIMUS
     Indication: RENAL TRANSPLANT
     Dosage: ?          OTHER FREQUENCY:2 CS QAM/ 1 C QPM;?
     Route: 048
     Dates: start: 20200411
  2. ASPIRIN. [Concomitant]
     Active Substance: ASPIRIN
  3. LOSARTAN. [Concomitant]
     Active Substance: LOSARTAN
  4. VENTOLIN [Concomitant]
     Active Substance: ALBUTEROL SULFATE
  5. LANTUS [Concomitant]
     Active Substance: INSULIN GLARGINE
  6. PREDNISONE. [Concomitant]
     Active Substance: PREDNISONE
  7. MYCOPHENOLATE 250 MG CAP [Suspect]
     Active Substance: MYCOPHENOLIC ACID
     Indication: RENAL TRANSPLANT
     Route: 048
     Dates: start: 20200402
  8. TAMSULOSIN [Concomitant]
     Active Substance: TAMSULOSIN
  9. ATOVASTATIN [Concomitant]
     Active Substance: ATORVASTATIN
  10. COREG [Concomitant]
     Active Substance: CARVEDILOL
  11. MEMANTINE. [Concomitant]
     Active Substance: MEMANTINE
  12. TRAZODONE [Concomitant]
     Active Substance: TRAZODONE HYDROCHLORIDE
  13. HYDROCHLOROT [Concomitant]
     Active Substance: HYDROCHLOROTHIAZIDE

REACTIONS (1)
  - Death [None]

NARRATIVE: CASE EVENT DATE: 20210603
